FAERS Safety Report 5854268-5 (Version None)
Quarter: 2008Q3

REPORT INFORMATION
  Report Type: 
  Country: None (occurrence: None)
  Receive Date: 20080822
  Receipt Date: 20080811
  Transmission Date: 20090109
  Serious: Yes (Hospitalization, Other)
  Sender: FDA-Public Use
  Company Number: IE-GENENTECH-264541

PATIENT
  Sex: Female

DRUGS (13)
  1. XOLAIR [Suspect]
     Indication: ASTHMA
     Dosage: 300 MG, 1/MONTH
     Route: 058
  2. SEROTID INHALER (UNK INGREDIENTS) [Concomitant]
     Indication: DRUG USE FOR UNKNOWN INDICATION
  3. VENTOLIN [Concomitant]
     Indication: DRUG USE FOR UNKNOWN INDICATION
  4. THEOPHYLLINE [Concomitant]
     Indication: DRUG USE FOR UNKNOWN INDICATION
  5. ACTONEL [Concomitant]
     Indication: DRUG USE FOR UNKNOWN INDICATION
  6. DESLORATADINE [Concomitant]
     Indication: DRUG USE FOR UNKNOWN INDICATION
  7. COMBIVENT [Concomitant]
     Indication: DRUG USE FOR UNKNOWN INDICATION
  8. PREDNISOLONE [Concomitant]
     Indication: DRUG USE FOR UNKNOWN INDICATION
  9. SINGULAIR [Concomitant]
     Indication: DRUG USE FOR UNKNOWN INDICATION
  10. CALCICHEW D3 [Concomitant]
     Indication: DRUG USE FOR UNKNOWN INDICATION
  11. FRUMIL [Concomitant]
     Indication: DRUG USE FOR UNKNOWN INDICATION
  12. QVAR 40 [Concomitant]
     Indication: DRUG USE FOR UNKNOWN INDICATION
  13. LANSOPRAZOLE [Concomitant]
     Indication: DRUG USE FOR UNKNOWN INDICATION

REACTIONS (1)
  - GOUT [None]
